FAERS Safety Report 6686717-7 (Version None)
Quarter: 2010Q2

REPORT INFORMATION
  Report Type: 
  Country: None (occurrence: None)
  Receive Date: 20100419
  Receipt Date: 20100409
  Transmission Date: 20101027
  Serious: Yes (Disabling)
  Sender: FDA-Public Use
  Company Number: US-ABBOTT-10P-163-0637457-00

PATIENT
  Sex: Female
  Weight: 60 kg

DRUGS (5)
  1. HUMIRA [Suspect]
     Indication: PSORIASIS
     Route: 058
     Dates: start: 20080624, end: 20100406
  2. WELLBUTRIN [Concomitant]
     Indication: DEPRESSION
     Dates: end: 20100301
  3. WELLBUTRIN [Concomitant]
     Indication: ANXIETY
  4. APLENZIN [Concomitant]
     Indication: DEPRESSION
     Dates: start: 20100301
  5. APLENZIN [Concomitant]
     Indication: ANXIETY

REACTIONS (2)
  - OPTIC NEURITIS [None]
  - VISION BLURRED [None]
